FAERS Safety Report 6603067-5 (Version None)
Quarter: 2010Q1

REPORT INFORMATION
  Report Type: 
  Country: None (occurrence: None)
  Receive Date: 20100226
  Receipt Date: 20100216
  Transmission Date: 20100710
  Serious: Yes (Other)
  Sender: FDA-Public Use
  Company Number: PHEH2009US14977

PATIENT
  Sex: Male
  Weight: 48.073 kg

DRUGS (13)
  1. EXJADE [Suspect]
     Indication: MYELODYSPLASTIC SYNDROME
     Dosage: 625 MG, QD
     Route: 048
     Dates: start: 20090901
  2. EXJADE [Suspect]
     Indication: IRON OVERLOAD
     Dosage: 1000 MG, QD
     Route: 048
     Dates: start: 20090924, end: 20100101
  3. EXJADE [Suspect]
     Dosage: 875 MG/DAY
     Route: 048
     Dates: start: 20091016
  4. SANDIMMUNE [Suspect]
  5. METOPROLOL TARTRATE [Suspect]
  6. IMMUNE GLOBULIN (HUMAN) [Suspect]
  7. CENTRUM SILVER [Concomitant]
  8. MONOPRIL [Concomitant]
  9. NEXIUM [Concomitant]
  10. ARANESP [Concomitant]
  11. TOPROL-XL [Concomitant]
     Dosage: 12.5 G, QD
     Route: 048
  12. NEUPOGEN [Concomitant]
     Dosage: 300 UG, UNK
  13. PROCRIT [Concomitant]
     Dosage: 40000 U, UNK

REACTIONS (16)
  - ARTHRALGIA [None]
  - DIARRHOEA [None]
  - DRUG TOXICITY [None]
  - GLOSSODYNIA [None]
  - HEADACHE [None]
  - JOINT SWELLING [None]
  - OROPHARYNGEAL PAIN [None]
  - PHOTOPSIA [None]
  - RASH [None]
  - RHEUMATOID ARTHRITIS [None]
  - TONGUE ULCERATION [None]
  - ULCER [None]
  - VISUAL IMPAIRMENT [None]
  - VITREOUS DETACHMENT [None]
  - VITREOUS FLOATERS [None]
  - VOMITING [None]
